FAERS Safety Report 4918466-7 (Version None)
Quarter: 2006Q1

REPORT INFORMATION
  Report Type: 
  Country: None (occurrence: None)
  Receive Date: 20060217
  Receipt Date: 20060217
  Transmission Date: 20060701
  Serious: Yes (Hospitalization)
  Sender: FDA-Public Use
  Company Number: None

PATIENT
  Sex: Female
  Weight: 89.3586 kg

DRUGS (1)
  1. ENBREL [Suspect]
     Indication: RHEUMATOID ARTHRITIS
     Dosage: 50 MG SQ Q WEEKLY
     Route: 058
     Dates: start: 20010801

REACTIONS (3)
  - ESCHERICHIA INFECTION [None]
  - PNEUMONIA PNEUMOCOCCAL [None]
  - URINARY TRACT INFECTION [None]
